FAERS Safety Report 5980310-7 (Version None)
Quarter: 2008Q4

REPORT INFORMATION
  Report Type: 
  Country: None (occurrence: None)
  Receive Date: 20081205
  Receipt Date: 20081128
  Transmission Date: 20090506
  Serious: Yes (Other)
  Sender: FDA-Public Use
  Company Number: PHHY2008GB30344

PATIENT
  Sex: Female

DRUGS (2)
  1. BACLOFEN [Suspect]
     Dosage: 50 MG/DAY
  2. CARBAMAZEPINE [Suspect]
     Dosage: 200 MG, TID
     Route: 048

REACTIONS (1)
  - PNEUMONIA [None]
